FAERS Safety Report 8947224 (Version 1)
Quarter: 2012Q4

REPORT INFORMATION
  Report Type: 
  Country: US (occurrence: US)
  Receive Date: 20121205
  Receipt Date: 20121205
  Transmission Date: 20130627
  Serious: Yes (Death)
  Sender: FDA-Public Use
  Company Number: US-MYLANLABS-2012S1024415

PATIENT
  Age: 22 Month
  Sex: Female

DRUGS (1)
  1. VANCOMYCIN [Suspect]
     Indication: PERICARDITIS
     Route: 042

REACTIONS (3)
  - Drug reaction with eosinophilia and systemic symptoms [Fatal]
  - Myocarditis [Fatal]
  - Cardiac failure [Fatal]
